FAERS Safety Report 18285325 (Version 1)
Quarter: 2020Q3

REPORT INFORMATION
  Report Type: Spontaneous
  Country: US (occurrence: US)
  Receive Date: 20200918
  Receipt Date: 20200918
  Transmission Date: 20201103
  Serious: Yes (Hospitalization, Other)
  Sender: FDA-Public Use
  Company Number: US-TEVA-2020-US-1828674

PATIENT
  Sex: Female

DRUGS (5)
  1. TRAMADOL. [Suspect]
     Active Substance: TRAMADOL
     Route: 065
     Dates: start: 2006
  2. OXYCONTIN [Suspect]
     Active Substance: OXYCODONE HYDROCHLORIDE
     Route: 065
     Dates: start: 2006
  3. HYDROCODONE BITRATE [Suspect]
     Active Substance: HYDROCODONE BITARTRATE
     Route: 065
     Dates: start: 2006
  4. ACETAMINOPHEN W/OXYCODONE [Suspect]
     Active Substance: ACETAMINOPHEN\OXYCODONE HYDROCHLORIDE
     Route: 065
     Dates: start: 2006
  5. OXYCODONE HYDROCHLORIDE. [Suspect]
     Active Substance: OXYCODONE HYDROCHLORIDE
     Route: 065
     Dates: start: 2006

REACTIONS (4)
  - Illness [Recovering/Resolving]
  - Withdrawal syndrome [Recovering/Resolving]
  - Accident [Unknown]
  - Drug dependence [Recovering/Resolving]
